FAERS Safety Report 6408797-6 (Version None)
Quarter: 2009Q4

REPORT INFORMATION
  Report Type: 
  Country: None (occurrence: None)
  Receive Date: 20091021
  Receipt Date: 20091014
  Transmission Date: 20100525
  Serious: Yes (Other)
  Sender: FDA-Public Use
  Company Number: B0581793A

PATIENT
  Age: 7 Year
  Sex: Male
  Weight: 21 kg

DRUGS (3)
  1. LANOXIN [Suspect]
     Indication: HEART DISEASE CONGENITAL
     Route: 048
     Dates: start: 20090331
  2. ASAFLOW [Concomitant]
     Dosage: 80MG UNKNOWN
     Route: 065
  3. ZESTRIL [Concomitant]
     Route: 065

REACTIONS (6)
  - CONJUNCTIVAL HYPERAEMIA [None]
  - DYSGRAPHIA [None]
  - PARAESTHESIA [None]
  - PRURITUS [None]
  - VISION BLURRED [None]
  - VISUAL IMPAIRMENT [None]
